FAERS Safety Report 6300408-3 (Version None)
Quarter: 2009Q3

REPORT INFORMATION
  Report Type: 
  Country: None (occurrence: None)
  Receive Date: 20090806
  Receipt Date: 20080815
  Transmission Date: 20100115
  Serious: No
  Sender: FDA-Public Use
  Company Number: US-ABBOTT-08P-163-0471311-00

PATIENT
  Sex: Female
  Weight: 49.94 kg

DRUGS (3)
  1. DEPAKOTE ER [Suspect]
     Indication: DEPRESSION
     Route: 048
     Dates: start: 20080401
  2. DEPAKOTE ER [Suspect]
     Dosage: 125 MG EVERY HS
     Route: 048
  3. ESCITALOPRAM OXALATE [Concomitant]
     Indication: DEPRESSION
     Dates: start: 20080601

REACTIONS (2)
  - ALOPECIA [None]
  - STRESS [None]
